FAERS Safety Report 5710624-7 (Version None)
Quarter: 2008Q2

REPORT INFORMATION
  Report Type: 
  Country: None (occurrence: None)
  Receive Date: 20080415
  Receipt Date: 20080401
  Transmission Date: 20081010
  Serious: Yes (Other)
  Sender: FDA-Public Use
  Company Number: B0516200A

PATIENT

DRUGS (2)
  1. FORTAZ [Suspect]
     Indication: PSEUDOMONAS INFECTION
     Dosage: INTRAVENOUS
     Route: 042
  2. TOBRAMYCIN SULFATE [Suspect]
     Indication: PSEUDOMONAS INFECTION
     Dosage: INTRAVENOUS
     Route: 042

REACTIONS (1)
  - PANCREATITIS ACUTE [None]
